FAERS Safety Report 9282750 (Version 2)
Quarter: 2013Q2

REPORT INFORMATION
  Report Type: Spontaneous
  Country: US (occurrence: None)
  Receive Date: 20101119
  Receipt Date: 20130419
  Transmission Date: 20140414
  Serious: Yes (Life-Threatening)
  Sender: FDA-Public Use
  Company Number: 54973 RSAE102510EF006

PATIENT
  Age: 17 Month
  Sex: Female
  Weight: 9.98 kg

DRUGS (1)
  1. HYLAND^S TEETHING TABLETS [Suspect]
     Indication: TEETHING
     Dosage: AS  NEEDED  ON  DLY  BASIS

REACTIONS (4)
  - Vomiting [None]
  - Trance [None]
  - Convulsion [None]
  - Micturition disorder [None]
